FAERS Safety Report 4730394-9 (Version None)
Quarter: 2005Q3

REPORT INFORMATION
  Report Type: 
  Country: None (occurrence: None)
  Receive Date: 20050801
  Receipt Date: 20050720
  Transmission Date: 20060218
  Serious: Yes (Hospitalization)
  Sender: FDA-Public Use
  Company Number: US-MERCK-0507USA03263

PATIENT
  Age: 71 Year
  Sex: Female
  Weight: 71 kg

DRUGS (8)
  1. VIOXX [Suspect]
     Route: 048
     Dates: start: 20020706, end: 20031124
  2. ATENOLOL [Concomitant]
     Route: 048
  3. NEXIUM [Concomitant]
     Route: 048
  4. INSULIN HUMAN [Concomitant]
     Route: 065
  5. AMBIEN [Concomitant]
     Route: 048
  6. AVANDIA [Concomitant]
     Route: 048
  7. BETOPTIC [Concomitant]
     Route: 047
  8. PREMARIN [Concomitant]
     Route: 048

REACTIONS (2)
  - ANAEMIA [None]
  - CEREBROVASCULAR ACCIDENT [None]
